FAERS Safety Report 4365077-0 (Version None)
Quarter: 2004Q2

REPORT INFORMATION
  Report Type: 
  Country: None (occurrence: None)
  Receive Date: 20040520
  Receipt Date: 20040507
  Transmission Date: 20050107
  Serious: Yes (Hospitalization)
  Sender: FDA-Public Use
  Company Number: 6008765

PATIENT
  Age: 80 Year
  Sex: Female

DRUGS (3)
  1. SOPROL (TABLETS) (BISOPROLOL FUMARATE) [Suspect]
     Indication: HYPERTENSION
     Dosage: 10,000 MG (10 MG, 1 IN 1 D); ORAL
     Route: 048
     Dates: start: 20030203, end: 20031219
  2. COMBIVENT [Concomitant]
  3. FLIXOTIDE (FLUTICASONE PROPIONATE) [Concomitant]

REACTIONS (5)
  - BLOOD PH INCREASED [None]
  - CHEST X-RAY ABNORMAL [None]
  - CONDITION AGGRAVATED [None]
  - DYSPNOEA [None]
  - PLEURAL CALCIFICATION [None]
